FAERS Safety Report 8742158 (Version 7)
Quarter: 2012Q4

REPORT INFORMATION
  Report Type: 
  Country: US (occurrence: US)
  Receive Date: 20120824
  Receipt Date: 20121106
  Transmission Date: 20130627
  Serious: Yes (Other)
  Sender: FDA-Public Use
  Company Number: PHEH2012US016536

PATIENT
  Sex: Female

DRUGS (3)
  1. AREDIA [Suspect]
     Indication: MULTIPLE MYELOMA
     Route: 042
  2. CHEMOTHERAPEUTICS [Concomitant]
     Dates: start: 200006, end: 200101
  3. PROZAC [Concomitant]

REACTIONS (27)
  - Irritable bowel syndrome [Unknown]
  - Rectal haemorrhage [Unknown]
  - Large intestine polyp [Unknown]
  - Palpitations [Unknown]
  - Papilloedema [Unknown]
  - Rectal polyp [Unknown]
  - Rib fracture [Unknown]
  - Chest pain [Unknown]
  - Intervertebral disc degeneration [Unknown]
  - Intervertebral disc protrusion [Unknown]
  - Libido decreased [Unknown]
  - Thyroid neoplasm [Unknown]
  - Thyroid cyst [Unknown]
  - Cervicitis [Unknown]
  - Cervical dysplasia [Unknown]
  - Papilloma viral infection [Unknown]
  - Premenstrual dysphoric disorder [Unknown]
  - Suicidal ideation [Unknown]
  - Hiatus hernia [Unknown]
  - Gastritis [Unknown]
  - Abdominal pain upper [Unknown]
  - Asthenopia [Unknown]
  - Corneal abrasion [Unknown]
  - Bone deformity [Unknown]
  - Weight increased [Unknown]
  - Constipation [Unknown]
  - Abdominal distension [Unknown]
